FAERS Safety Report 18151552 (Version 1)
Quarter: 2020Q3

REPORT INFORMATION
  Report Type: Spontaneous
  Country: SE (occurrence: SE)
  Receive Date: 20200814
  Receipt Date: 20200814
  Transmission Date: 20201103
  Serious: Yes (Hospitalization)
  Sender: FDA-Public Use
  Company Number: SE-MICRO LABS LIMITED-ML2020-02354

PATIENT
  Age: 40 Year
  Sex: Female
  Weight: 63 kg

DRUGS (1)
  1. AMOXICILLIN/CLAVULANIC ACID [Suspect]
     Active Substance: AMOXICILLIN\CLAVULANIC ACID
     Indication: LOCALISED INFECTION
     Dosage: 2 DOSER
     Dates: start: 20200713, end: 20200713

REACTIONS (3)
  - Dyspnoea [Recovered/Resolved with Sequelae]
  - Arthralgia [Recovered/Resolved with Sequelae]
  - Rash [Recovered/Resolved with Sequelae]

NARRATIVE: CASE EVENT DATE: 20200713
